FAERS Safety Report 4478568-9 (Version None)
Quarter: 2004Q4

REPORT INFORMATION
  Report Type: 
  Country: None (occurrence: None)
  Receive Date: 20041019
  Receipt Date: 20040915
  Transmission Date: 20050328
  Serious: Yes (Hospitalization)
  Sender: FDA-Public Use
  Company Number: BE-MERCK-0409BEL00016

PATIENT
  Age: 16 Year
  Sex: Male
  Weight: 90 kg

DRUGS (3)
  1. SINGULAIR [Suspect]
     Indication: ATOPY
     Route: 048
     Dates: start: 20040101, end: 20040831
  2. EBASTINE [Concomitant]
     Indication: ATOPY
     Route: 048
  3. MOMETASONE FUROATE [Concomitant]
     Indication: ATOPY
     Route: 055

REACTIONS (1)
  - APLASTIC ANAEMIA [None]
